FAERS Safety Report 5752122-0 (Version None)
Quarter: 2008Q2

REPORT INFORMATION
  Report Type: 
  Country: None (occurrence: None)
  Receive Date: 20080529
  Receipt Date: 20070531
  Transmission Date: 20081010
  Serious: No
  Sender: FDA-Public Use
  Company Number: US-BAUSCH-2007BL001278

PATIENT
  Age: 53 Year
  Sex: Male

DRUGS (4)
  1. BRIMONIDINE TARTRATE [Suspect]
     Indication: GLAUCOMA
     Route: 047
     Dates: start: 20070201, end: 20070201
  2. BRIMONIDINE TARTRATE [Suspect]
     Route: 047
     Dates: start: 20070406, end: 20070406
  3. XALATAN /SWE/ [Concomitant]
     Indication: GLAUCOMA
     Route: 047
     Dates: start: 20050101
  4. ^UNSPECIFIED BAUSCH + LOMB INC. OCULAR LUBRICANT^ [Concomitant]

REACTIONS (4)
  - BLINDNESS TRANSIENT [None]
  - EYE IRRITATION [None]
  - MEDICATION ERROR [None]
  - SKIN EXFOLIATION [None]
